FAERS Safety Report 10091126 (Version 2)
Quarter: 2014Q2

REPORT INFORMATION
  Report Type: Spontaneous
  Country: US (occurrence: US)
  Receive Date: 20140421
  Receipt Date: 20140421
  Transmission Date: 20141212
  Serious: No
  Sender: FDA-Public Use
  Company Number: US-GILEAD-2012-0060472

PATIENT
  Age: 69 Year
  Sex: Male

DRUGS (1)
  1. LETAIRIS [Suspect]
     Indication: PRODUCT USED FOR UNKNOWN INDICATION
     Dosage: 5 MG, UNK
     Route: 048
     Dates: start: 20120720, end: 20120818

REACTIONS (5)
  - Eye disorder [Unknown]
  - Pain in extremity [Unknown]
  - Eye disorder [Unknown]
  - Headache [Unknown]
  - Fluid retention [Unknown]
